FAERS Safety Report 23446316 (Version 1)
Quarter: 2024Q1

REPORT INFORMATION
  Report Type: Spontaneous
  Country: US (occurrence: None)
  Receive Date: 20240125
  Receipt Date: 20240125
  Transmission Date: 20240410
  Serious: Yes (Hospitalization)
  Sender: FDA-Public Use
  Company Number: None

PATIENT
  Age: 44 Year
  Sex: Female

DRUGS (1)
  1. AUSTEDO [Suspect]
     Active Substance: DEUTETRABENAZINE
     Dosage: FREQUENCY : DAILY;?

REACTIONS (10)
  - Drug intolerance [None]
  - Depression [None]
  - Suicide attempt [None]
  - Heart rate irregular [None]
  - Blood pressure increased [None]
  - Trismus [None]
  - Gastrooesophageal reflux disease [None]
  - Cough [None]
  - Pruritus [None]
  - Therapy interrupted [None]

NARRATIVE: CASE EVENT DATE: 20231001
